FAERS Safety Report 17529002 (Version 1)
Quarter: 2020Q1

REPORT INFORMATION
  Report Type: Spontaneous
  Country: FR (occurrence: FR)
  Receive Date: 20200311
  Receipt Date: 20200311
  Transmission Date: 20200409
  Serious: Yes (Death)
  Sender: FDA-Public Use
  Company Number: FR-MYLANLABS-2020M1025681

PATIENT
  Age: 31 Year
  Sex: Female
  Weight: 55 kg

DRUGS (11)
  1. RAPIFEN                            /00676302/ [Suspect]
     Active Substance: ALFENTANIL HYDROCHLORIDE
     Indication: INDUCTION OF ANAESTHESIA
     Dosage: 2000 MICROGRAM, QD
     Route: 042
     Dates: start: 20200117, end: 20200117
  2. PROFENID [Suspect]
     Active Substance: KETOPROFEN
     Indication: ANALGESIC THERAPY
     Route: 042
     Dates: start: 20200117, end: 20200118
  3. PROPOFOL LIPURO [Suspect]
     Active Substance: PROPOFOL
     Indication: INDUCTION OF ANAESTHESIA
     Route: 042
     Dates: start: 20200117, end: 20200117
  4. NEFOPAM MYLAN [Suspect]
     Active Substance: NEFOPAM
     Indication: ANALGESIC THERAPY
     Route: 042
     Dates: start: 20200117, end: 20200117
  5. TOPALGIC                           /00599202/ [Suspect]
     Active Substance: TRAMADOL HYDROCHLORIDE
     Indication: ANALGESIC THERAPY
     Dosage: UNK
     Route: 042
     Dates: start: 20200117, end: 20200117
  6. SPASFON                            /00765801/ [Suspect]
     Active Substance: PHLOROGLUCINOL\1,3,5-TRIMETHOXYBENZENE
     Indication: ANALGESIC THERAPY
     Route: 042
     Dates: start: 20200117, end: 20200118
  7. DEXAMETHASONE MYLAN [Suspect]
     Active Substance: DEXAMETHASONE
     Indication: ANTIEMETIC SUPPORTIVE CARE
     Dosage: UNK
     Route: 042
     Dates: start: 20200117, end: 20200117
  8. BIOCODEX SUXAMETHONIUM [Suspect]
     Active Substance: SUCCINYLCHOLINE CHLORIDE
     Indication: INDUCTION OF ANAESTHESIA
     Dosage: UNK
     Route: 042
     Dates: start: 20200117, end: 20200117
  9. EPHEDRINE AGUETTANT [Suspect]
     Active Substance: EPHEDRINE
     Indication: HYPOTENSION
     Route: 042
     Dates: start: 20200117, end: 20200117
  10. OXYTOCINE [Suspect]
     Active Substance: OXYTOCIN
     Indication: UTERINE ATONY
     Dosage: UNK
     Route: 042
     Dates: start: 20200117, end: 20200117
  11. PARACETAMOL B BRAUN [Suspect]
     Active Substance: ACETAMINOPHEN
     Indication: ANALGESIC THERAPY
     Route: 042
     Dates: start: 20200117, end: 20200118

REACTIONS (4)
  - Septic shock [Fatal]
  - Beta haemolytic streptococcal infection [Fatal]
  - Disseminated intravascular coagulation [Fatal]
  - Infection [Fatal]

NARRATIVE: CASE EVENT DATE: 20200119
